FAERS Safety Report 21500466 (Version 1)
Quarter: 2022Q4

REPORT INFORMATION
  Report Type: Spontaneous
  Country: US (occurrence: US)
  Receive Date: 20221025
  Receipt Date: 20221025
  Transmission Date: 20230113
  Serious: Yes (Death, Other)
  Sender: FDA-Public Use
  Company Number: US-BRISTOL-MYERS SQUIBB COMPANY-2022-125347

PATIENT
  Age: 70 Year
  Sex: Male

DRUGS (1)
  1. REVLIMID [Suspect]
     Active Substance: LENALIDOMIDE
     Indication: Product used for unknown indication
     Dosage: TAKE 1 CAP BY MOUTH WHOLE W/ OR W/O FOOD AT THE SAME TIME DAILY FOR 21 DAYS THEN OFF FOR 7 DAYS EACH
     Route: 048
     Dates: start: 20220107

REACTIONS (1)
  - Death [Fatal]
